FAERS Safety Report 8888233 (Version 3)
Quarter: 2012Q4

REPORT INFORMATION
  Report Type: Report from Study
  Country: US (occurrence: US)
  Receive Date: 20121106
  Receipt Date: 20121114
  Transmission Date: 20130627
  Serious: Yes (Hospitalization)
  Sender: FDA-Public Use
  Company Number: US-JNJFOC-20121015682

PATIENT
  Age: 17 Year
  Sex: Female
  Weight: 49 kg

DRUGS (8)
  1. REMICADE [Suspect]
     Indication: CROHN^S DISEASE
     Route: 042
     Dates: start: 20110427, end: 20120503
  2. HUMIRA [Concomitant]
     Dates: start: 201206
  3. VITAMIN D [Concomitant]
  4. PROBIOTICS [Concomitant]
  5. WELLBUTRIN [Concomitant]
  6. FLUOXETINE [Concomitant]
  7. MELATONIN [Concomitant]
  8. VITAMIN B12 [Concomitant]

REACTIONS (2)
  - Arthritis [Recovered/Resolved]
  - Crohn^s disease [Recovered/Resolved]
